FAERS Safety Report 25452377 (Version 1)
Quarter: 2025Q2

REPORT INFORMATION
  Report Type: Spontaneous
  Country: PL (occurrence: PL)
  Receive Date: 20250618
  Receipt Date: 20250618
  Transmission Date: 20250717
  Serious: Yes (Life-Threatening, Hospitalization)
  Sender: B BRAUN
  Company Number: PL-B.Braun Medical Inc.-2178960

PATIENT
  Age: 39 Year
  Sex: Male
  Weight: 120 kg

DRUGS (2)
  1. ACETAMINOPHEN [Suspect]
     Active Substance: ACETAMINOPHEN
     Dates: start: 20210813, end: 20210813
  2. ALCOHOL [Suspect]
     Active Substance: ALCOHOL

REACTIONS (3)
  - Loss of consciousness [Recovered/Resolved]
  - Alcohol interaction [Recovered/Resolved]
  - Unresponsive to stimuli [Recovered/Resolved]
